FAERS Safety Report 4326752-7 (Version None)
Quarter: 2004Q1

REPORT INFORMATION
  Report Type: 
  Country: None (occurrence: None)
  Receive Date: 20040322
  Receipt Date: 20040115
  Transmission Date: 20041129
  Serious: No
  Sender: FDA-Public Use
  Company Number: PHEH2003US11587

PATIENT
  Age: 71 Year
  Sex: Female

DRUGS (1)
  1. ZOMETA [Suspect]
     Indication: BREAST CANCER METASTATIC
     Dosage: 4 MG ONCE PER MONTH, INTRAVENOUS
     Route: 042
     Dates: start: 20030627

REACTIONS (4)
  - OEDEMA [None]
  - OLIGURIA [None]
  - PAIN [None]
  - RENAL DISORDER [None]
